FAERS Safety Report 8478184-8 (Version None)
Quarter: 2012Q2

REPORT INFORMATION
  Report Type: 
  Country: None (occurrence: None)
  Receive Date: 20120629
  Receipt Date: 20120623
  Transmission Date: 20120825
  Serious: Yes (Hospitalization)
  Sender: FDA-Public Use
  Company Number: PHHY2012ES053795

PATIENT
  Age: 4 Year
  Sex: Male

DRUGS (5)
  1. TACROLIMUS [Concomitant]
  2. EVEROLIMUS [Suspect]
  3. PLASMAPHERESIS BLOOD-PACK SYSTEM INFUSION [Concomitant]
  4. CORTICOSTEROIDS [Concomitant]
  5. ANTI-THYMOCYTE GLOBULIN NOS [Concomitant]

REACTIONS (24)
  - DEHYDRATION [None]
  - ILEUS PARALYTIC [None]
  - ABDOMINAL COMPARTMENT SYNDROME [None]
  - LEUKOPENIA [None]
  - CONDITION AGGRAVATED [None]
  - ASCITES [None]
  - OEDEMA [None]
  - RENAL FAILURE [None]
  - DIARRHOEA [None]
  - INFLAMMATION [None]
  - MYOPATHY [None]
  - RESPIRATORY TRACT INFECTION [None]
  - SEPTIC SHOCK [None]
  - RESPIRATORY FAILURE [None]
  - MUCOUS STOOLS [None]
  - SYNCOPE [None]
  - HYPOALBUMINAEMIA [None]
  - CLOSTRIDIAL INFECTION [None]
  - MEGACOLON [None]
  - ELECTROLYTE IMBALANCE [None]
  - FAECAL VOLUME DECREASED [None]
  - PSEUDOMEMBRANOUS COLITIS [None]
  - HEART TRANSPLANT REJECTION [None]
  - ABDOMINAL DISTENSION [None]
